FAERS Safety Report 23522746 (Version 3)
Quarter: 2024Q1

REPORT INFORMATION
  Report Type: Spontaneous
  Country: US (occurrence: US)
  Receive Date: 20240214
  Receipt Date: 20240318
  Transmission Date: 20240410
  Serious: Yes (Other)
  Sender: FDA-Public Use
  Company Number: US-KARYOPHARM-2023KPT002281

PATIENT

DRUGS (14)
  1. XPOVIO [Suspect]
     Active Substance: SELINEXOR
     Indication: Plasma cell myeloma
     Dosage: 40 MG, 2X/WEEK
     Route: 048
     Dates: start: 202312, end: 202312
  2. XPOVIO [Suspect]
     Active Substance: SELINEXOR
     Dosage: 40 MG, WEEKLY
     Route: 048
     Dates: start: 2024
  3. ACYCLOVIR [Concomitant]
     Active Substance: ACYCLOVIR
  4. ATIVAN [Concomitant]
     Active Substance: LORAZEPAM
  5. DEXAMETHASONE [Concomitant]
     Active Substance: DEXAMETHASONE
  6. HIPREX [METHENAMINE HIPPURATE] [Concomitant]
  7. LEVOTHYROXINE [Concomitant]
     Active Substance: LEVOTHYROXINE\LEVOTHYROXINE SODIUM
  8. METOPROLOL SUCCINATE [Concomitant]
     Active Substance: METOPROLOL SUCCINATE
  9. PRAVASTATIN [Concomitant]
     Active Substance: PRAVASTATIN
  10. REGLAN [Concomitant]
     Active Substance: METOCLOPRAMIDE HYDROCHLORIDE
  11. XANAX [Concomitant]
     Active Substance: ALPRAZOLAM
  12. XARELTO [Concomitant]
     Active Substance: RIVAROXABAN
  13. ONDANSETRON [Concomitant]
     Active Substance: ONDANSETRON
  14. TRANSDERM SCOP [Concomitant]
     Active Substance: SCOPOLAMINE

REACTIONS (7)
  - Dehydration [Unknown]
  - Influenza like illness [Recovering/Resolving]
  - Oropharyngeal pain [Recovering/Resolving]
  - Cough [Recovering/Resolving]
  - Nausea [Not Recovered/Not Resolved]
  - Decreased appetite [Unknown]
  - Pyrexia [Recovering/Resolving]

NARRATIVE: CASE EVENT DATE: 20230101
